FAERS Safety Report 6180062-4 (Version None)
Quarter: 2009Q2

REPORT INFORMATION
  Report Type: 
  Country: None (occurrence: None)
  Receive Date: 20090501
  Receipt Date: 20090406
  Transmission Date: 20091009
  Serious: No
  Sender: FDA-Public Use
  Company Number: 253674

PATIENT

DRUGS (1)
  1. LIDOCAINE [Suspect]
     Indication: ANAESTHESIA PROCEDURE
     Dosage: ONCE, TOPICAL
     Route: 061

REACTIONS (4)
  - DEVICE BREAKAGE [None]
  - DEVICE SHAPE ALTERATION [None]
  - ENDOTRACHEAL INTUBATION COMPLICATION [None]
  - FOREIGN BODY TRAUMA [None]
